FAERS Safety Report 5651427-1 (Version None)
Quarter: 2008Q1

REPORT INFORMATION
  Report Type: 
  Country: None (occurrence: None)
  Receive Date: 20080305
  Receipt Date: 20080222
  Transmission Date: 20080703
  Serious: Yes (Other)
  Sender: FDA-Public Use
  Company Number: JP-ELI_LILLY_AND_COMPANY-JP200707006395

PATIENT
  Age: 15 Year
  Sex: Male

DRUGS (5)
  1. HUMATROPE [Suspect]
     Indication: GROWTH HORMONE DEFICIENCY
     Dosage: 0.025MG/KG, DAILY(1/D)
     Route: 058
     Dates: start: 20070101, end: 20070101
  2. HUMATROPE [Suspect]
     Dosage: UNK, DAILY (1/D)
     Route: 058
     Dates: start: 20070101
  3. CORTRIL [Concomitant]
     Indication: HYPOPITUITARISM
     Route: 048
  4. THYRADIN [Concomitant]
     Indication: HYPOPITUITARISM
     Route: 048
  5. DESMOPRESSIN ACETATE [Concomitant]
     Indication: HYPOPITUITARISM

REACTIONS (1)
  - EPIPHYSIOLYSIS [None]
